FAERS Safety Report 4840494-0 (Version None)
Quarter: 2005Q4

REPORT INFORMATION
  Report Type: 
  Country: None (occurrence: None)
  Receive Date: 20051130
  Receipt Date: 20050822
  Transmission Date: 20060501
  Serious: No
  Sender: FDA-Public Use
  Company Number: US-BRISTOL-MYERS SQUIBB COMPANY-13085592

PATIENT
  Sex: Male

DRUGS (3)
  1. ERBITUX [Suspect]
     Indication: COLON CANCER
     Route: 042
     Dates: start: 20050101, end: 20050101
  2. BENADRYL [Concomitant]
     Indication: PREMEDICATION
     Route: 042
  3. CAMPTOSAR [Concomitant]

REACTIONS (1)
  - NAIL DISORDER [None]
